FAERS Safety Report 5474705-8 (Version None)
Quarter: 2007Q3

REPORT INFORMATION
  Report Type: 
  Country: None (occurrence: None)
  Receive Date: 20070928
  Receipt Date: 20070914
  Transmission Date: 20080115
  Serious: Yes (Other)
  Sender: FDA-Public Use
  Company Number: DSA_30539_2007

PATIENT
  Age: 8 Year
  Sex: Male

DRUGS (3)
  1. ENALAPRIL MALEATE (ENALAPRIL MALEATE) 0.5 MG/KG [Suspect]
     Indication: HYPERTENSION
     Dosage: (0.5 MG/KG QD ORAL)
     Route: 048
  2. NIFEDIPINE [Concomitant]
  3. PROPRANOLOL HYDROCHLORIDE [Concomitant]

REACTIONS (1)
  - CUTANEOUS VASCULITIS [None]
